FAERS Safety Report 7213043-X (Version None)
Quarter: 2011Q1

REPORT INFORMATION
  Report Type: 
  Country: None (occurrence: None)
  Receive Date: 20110106
  Receipt Date: 20101228
  Transmission Date: 20110831
  Serious: Yes (Death)
  Sender: FDA-Public Use
  Company Number: B0690846A

PATIENT
  Sex: Female

DRUGS (6)
  1. TETRAMIDE [Concomitant]
     Indication: INSOMNIA
     Dosage: 10MG PER DAY
     Route: 048
     Dates: start: 20100701
  2. VALPROATE SODIUM [Suspect]
     Indication: EPILEPSY
     Dosage: 800MG PER DAY
     Route: 048
     Dates: start: 20091201
  3. SLOW FE [Concomitant]
     Dosage: 50MG PER DAY
     Route: 048
     Dates: start: 20091101
  4. LAMICTAL [Suspect]
     Indication: EPILEPSY
     Dosage: 25MG PER DAY
     Route: 048
     Dates: start: 20100108
  5. EXCEGRAN [Concomitant]
     Indication: EPILEPSY
     Dosage: 400MG PER DAY
     Route: 048
     Dates: start: 20091101, end: 20100501
  6. RANITAC [Concomitant]
     Indication: GASTRIC ULCER
     Dosage: 300MG PER DAY
     Route: 048
     Dates: start: 20091101

REACTIONS (4)
  - CLONIC CONVULSION [None]
  - SUDDEN DEATH [None]
  - WEIGHT INCREASED [None]
  - TONIC CONVULSION [None]
